FAERS Safety Report 8060178 (Version 2)
Quarter: 2013Q2

REPORT INFORMATION
  Report Type: Report from Study
  Country: MX (occurrence: MX)
  Receive Date: 20110729
  Receipt Date: 20130613
  Transmission Date: 20140414
  Serious: Yes (Other)
  Sender: FDA-Public Use
  Company Number: PHHY2011MX65289

PATIENT
  Age: 74 Year
  Sex: Female

DRUGS (2)
  1. DIOVAN [Suspect]
     Indication: HYPERTENSION
     Dosage: 2 DF, 160 MG PER DAY
  2. NORVAS [Concomitant]
     Indication: HYPERTENSION
     Dosage: 3 DF, PER DAY

REACTIONS (5)
  - Shock [Recovered/Resolved]
  - Hypertension [Recovered/Resolved]
  - Blood glucose decreased [Recovered/Resolved]
  - Weight decreased [Recovered/Resolved]
  - Decreased appetite [Recovered/Resolved]
